FAERS Safety Report 4736507-7 (Version None)
Quarter: 2005Q3

REPORT INFORMATION
  Report Type: 
  Country: None (occurrence: None)
  Receive Date: 20050802
  Receipt Date: 20050722
  Transmission Date: 20060218
  Serious: No
  Sender: FDA-Public Use
  Company Number: 05H-028-0301203-00

PATIENT
  Age: 41 Year
  Sex: Female

DRUGS (2)
  1. PENTOTHAL [Suspect]
     Indication: ELECTROCONVULSIVE THERAPY
     Dosage: 500 MG, OVER 3 DOSES,
     Dates: start: 20050722, end: 20050722
  2. SUCCINYCHOLINE (S-UXAMETHONIUM CHLORIDE) [Concomitant]

REACTIONS (1)
  - BLOOD PRESSURE INCREASED [None]
